FAERS Safety Report 15800351 (Version 2)
Quarter: 2019Q1

REPORT INFORMATION
  Report Type: Spontaneous
  Country: IT (occurrence: IT)
  Receive Date: 20190108
  Receipt Date: 20190109
  Transmission Date: 20190417
  Serious: Yes (Death, Hospitalization)
  Sender: FDA-Public Use
  Company Number: IT-B.I. PHARMACEUTICALS,INC./RIDGEFIELD-2019-12-000070

PATIENT
  Age: 80 Year
  Sex: Male

DRUGS (4)
  1. SERTRALINE [Suspect]
     Active Substance: SERTRALINE HYDROCHLORIDE
     Indication: ON AND OFF PHENOMENON
     Dosage: 50 MG, PER DAY
     Route: 065
  2. AMANTADINE. [Suspect]
     Active Substance: AMANTADINE HYDROCHLORIDE
     Indication: ON AND OFF PHENOMENON
     Dosage: 200 MG, PER DAY
     Route: 065
  3. LEVODOPA-CARBIDOPA [Suspect]
     Active Substance: CARBIDOPA\LEVODOPA
     Indication: ON AND OFF PHENOMENON
     Dosage: 1500 MG, PER DAY
     Route: 065
  4. SIFROL [Suspect]
     Active Substance: PRAMIPEXOLE
     Indication: ON AND OFF PHENOMENON
     Dosage: 1.05 MG, PER DAY
     Route: 065

REACTIONS (2)
  - Parkinsonism hyperpyrexia syndrome [Fatal]
  - Multiple organ dysfunction syndrome [Fatal]

NARRATIVE: CASE EVENT DATE: 201507
